FAERS Safety Report 8092197-X (Version None)
Quarter: 2012Q1

REPORT INFORMATION
  Report Type: 
  Country: None (occurrence: None)
  Receive Date: 20120129
  Receipt Date: 20111128
  Transmission Date: 20120608
  Serious: No
  Sender: FDA-Public Use
  Company Number: US-ABBOTT-11P-163-0876798-00

PATIENT
  Sex: Female
  Weight: 45.4 kg

DRUGS (3)
  1. HUMIRA [Suspect]
     Indication: CROHN'S DISEASE
     Dates: start: 20111110, end: 20111110
  2. DESOGESTREL AND ETHINYL ESTRADIOL [Concomitant]
     Indication: CONTRACEPTION
  3. HUMIRA [Suspect]
     Dates: start: 20111124

REACTIONS (8)
  - CHEST DISCOMFORT [None]
  - PAIN [None]
  - MUSCLE SPASMS [None]
  - PALPITATIONS [None]
  - HEART RATE INCREASED [None]
  - INSOMNIA [None]
  - RESTLESS LEGS SYNDROME [None]
  - DYSPNOEA [None]
